FAERS Safety Report 8406411-1 (Version None)
Quarter: 2012Q2

REPORT INFORMATION
  Report Type: 
  Country: None (occurrence: None)
  Receive Date: 20120604
  Receipt Date: 20120524
  Transmission Date: 20120825
  Serious: Yes (Hospitalization)
  Sender: FDA-Public Use
  Company Number: US-US-EMD SERONO, INC.-7025811

PATIENT
  Sex: Female
  Weight: 82 kg

DRUGS (8)
  1. NEURONTIN [Concomitant]
     Indication: MULTIPLE SCLEROSIS
  2. ZANAFLEX [Concomitant]
     Indication: MULTIPLE SCLEROSIS
  3. XANAX [Concomitant]
     Indication: AGORAPHOBIA
  4. LAMICTAL [Concomitant]
     Indication: BIPOLAR DISORDER
  5. CELEXA [Concomitant]
     Indication: DEPRESSION
  6. REBIF [Suspect]
     Indication: MULTIPLE SCLEROSIS
     Route: 058
     Dates: start: 20100303
  7. GLUCOPHAGE [Concomitant]
     Indication: DIABETES MELLITUS
  8. XANAX [Concomitant]
     Indication: ANXIETY

REACTIONS (5)
  - CEREBROVASCULAR ACCIDENT [None]
  - CEREBRAL THROMBOSIS [None]
  - CAROTID ARTERY OCCLUSION [None]
  - BLOOD CHOLESTEROL ABNORMAL [None]
  - BLOOD TRIGLYCERIDES ABNORMAL [None]
